FAERS Safety Report 7973743-0 (Version None)
Quarter: 2011Q4

REPORT INFORMATION
  Report Type: 
  Country: None (occurrence: None)
  Receive Date: 20111201
  Receipt Date: 20111123
  Transmission Date: 20120403
  Serious: Yes (Hospitalization)
  Sender: FDA-Public Use
  Company Number: 2011SP054961

PATIENT
  Age: 29 Year
  Sex: Female

DRUGS (5)
  1. GAVISCON [Concomitant]
  2. MIRTAZAPINE [Suspect]
     Indication: DEPRESSION
     Dosage: 15 MG;PO
     Route: 048
  3. DICYCLOVERINE HYROCHLORIDE [Concomitant]
  4. LANSOPRAZOLE [Concomitant]
  5. ACETAMINOPHEN [Concomitant]

REACTIONS (7)
  - NAUSEA [None]
  - LIVER FUNCTION TEST ABNORMAL [None]
  - ABDOMINAL PAIN [None]
  - VOMITING [None]
  - ALANINE AMINOTRANSFERASE INCREASED [None]
  - PAIN [None]
  - DISCOMFORT [None]
